FAERS Safety Report 15134464 (Version 1)
Quarter: 2018Q3

REPORT INFORMATION
  Report Type: Spontaneous
  Country: US (occurrence: US)
  Receive Date: 20180615
  Receipt Date: 20180615
  Transmission Date: 20181010
  Serious: No
  Sender: FDA-Public Use
  Company Number: None

PATIENT
  Age: 58 Year
  Sex: Male

DRUGS (6)
  1. METOPROLOL. [Concomitant]
     Active Substance: METOPROLOL
  2. ZETIA FINASTERIDE [Concomitant]
  3. REPATHA [Suspect]
     Active Substance: EVOLOCUMAB
  4. FENOFIBRATE. [Concomitant]
     Active Substance: FENOFIBRATE
  5. WARFARIN [Concomitant]
     Active Substance: WARFARIN
  6. TAMSULOSIN [Concomitant]
     Active Substance: TAMSULOSIN

REACTIONS (2)
  - Dizziness [None]
  - Orthostatic hypotension [None]

NARRATIVE: CASE EVENT DATE: 20180615
